FAERS Safety Report 24582229 (Version 4)
Quarter: 2024Q4

REPORT INFORMATION
  Report Type: Spontaneous
  Country: JP (occurrence: JP)
  Receive Date: 20241105
  Receipt Date: 20241206
  Transmission Date: 20250115
  Serious: Yes (Hospitalization, Other)
  Sender: ALEXION PHARMACEUTICALS
  Company Number: JP-ASTRAZENECA-240081697_010520_P_1

PATIENT
  Age: 77 Year
  Weight: 45 kg

DRUGS (60)
  1. FASLODEX [Suspect]
     Active Substance: FULVESTRANT
     Indication: Breast cancer
     Dosage: DOSE UNKNOWN
  2. FASLODEX [Suspect]
     Active Substance: FULVESTRANT
     Dosage: DOSE UNKNOWN
  3. FASLODEX [Suspect]
     Active Substance: FULVESTRANT
     Dosage: DOSE UNKNOWN
  4. FASLODEX [Suspect]
     Active Substance: FULVESTRANT
     Dosage: DOSE UNKNOWN
  5. FASLODEX [Suspect]
     Active Substance: FULVESTRANT
     Dosage: DOSE UNKNOWN
  6. FASLODEX [Suspect]
     Active Substance: FULVESTRANT
     Dosage: DOSE UNKNOWN
  7. FASLODEX [Suspect]
     Active Substance: FULVESTRANT
     Dosage: DOSE UNKNOWN
  8. FASLODEX [Suspect]
     Active Substance: FULVESTRANT
     Dosage: DOSE UNKNOWN
  9. FASLODEX [Suspect]
     Active Substance: FULVESTRANT
     Dosage: DOSE UNKNOWN
  10. FASLODEX [Suspect]
     Active Substance: FULVESTRANT
     Dosage: DOSE UNKNOWN
  11. FASLODEX [Suspect]
     Active Substance: FULVESTRANT
     Dosage: DOSE UNKNOWN
  12. FASLODEX [Suspect]
     Active Substance: FULVESTRANT
     Dosage: DOSE UNKNOWN
  13. FASLODEX [Suspect]
     Active Substance: FULVESTRANT
     Dosage: 250 MILLIGRAM
  14. FASLODEX [Suspect]
     Active Substance: FULVESTRANT
     Dosage: 250 MILLIGRAM
  15. FASLODEX [Suspect]
     Active Substance: FULVESTRANT
     Dosage: 250 MILLIGRAM
  16. FASLODEX [Suspect]
     Active Substance: FULVESTRANT
     Dosage: 250 MILLIGRAM
  17. FASLODEX [Suspect]
     Active Substance: FULVESTRANT
     Dosage: 250 MILLIGRAM
  18. FASLODEX [Suspect]
     Active Substance: FULVESTRANT
     Dosage: 250 MILLIGRAM
  19. FASLODEX [Suspect]
     Active Substance: FULVESTRANT
     Dosage: 250 MILLIGRAM
  20. FASLODEX [Suspect]
     Active Substance: FULVESTRANT
     Dosage: 250 MILLIGRAM
  21. TRUQAP [Suspect]
     Active Substance: CAPIVASERTIB
     Indication: Breast cancer
     Dosage: 400 MILLIGRAM, BID
  22. TRUQAP [Suspect]
     Active Substance: CAPIVASERTIB
     Dosage: 400 MILLIGRAM, BID
  23. TRUQAP [Suspect]
     Active Substance: CAPIVASERTIB
     Dosage: 400 MILLIGRAM, BID
  24. TRUQAP [Suspect]
     Active Substance: CAPIVASERTIB
     Dosage: 400 MILLIGRAM, BID
  25. TRUQAP [Suspect]
     Active Substance: CAPIVASERTIB
     Dosage: DOSE UNKNOWN, 4 DAYS IN A ROW, FOLLOWED BY 3 DAYS OFF.
  26. TRUQAP [Suspect]
     Active Substance: CAPIVASERTIB
     Dosage: DOSE UNKNOWN, 4 DAYS IN A ROW, FOLLOWED BY 3 DAYS OFF.
  27. TRUQAP [Suspect]
     Active Substance: CAPIVASERTIB
     Dosage: DOSE UNKNOWN, 4 DAYS IN A ROW, FOLLOWED BY 3 DAYS OFF.
  28. TRUQAP [Suspect]
     Active Substance: CAPIVASERTIB
     Dosage: DOSE UNKNOWN, 4 DAYS IN A ROW, FOLLOWED BY 3 DAYS OFF.
  29. FULVESTRANT [Suspect]
     Active Substance: FULVESTRANT
     Indication: Breast cancer
     Dosage: DOSE UNKNOWN
  30. FULVESTRANT [Suspect]
     Active Substance: FULVESTRANT
     Dosage: DOSE UNKNOWN
  31. FULVESTRANT [Suspect]
     Active Substance: FULVESTRANT
     Dosage: DOSE UNKNOWN
  32. FULVESTRANT [Suspect]
     Active Substance: FULVESTRANT
     Dosage: DOSE UNKNOWN
  33. FULVESTRANT [Suspect]
     Active Substance: FULVESTRANT
     Dosage: DOSE UNKNOWN
  34. FULVESTRANT [Suspect]
     Active Substance: FULVESTRANT
     Dosage: DOSE UNKNOWN
  35. FULVESTRANT [Suspect]
     Active Substance: FULVESTRANT
     Dosage: DOSE UNKNOWN
  36. FULVESTRANT [Suspect]
     Active Substance: FULVESTRANT
     Dosage: DOSE UNKNOWN
  37. TAMOXIFEN [Concomitant]
     Active Substance: TAMOXIFEN
     Indication: Breast cancer
     Dosage: DOSE UNKNOWN
     Route: 065
  38. TAMOXIFEN [Concomitant]
     Active Substance: TAMOXIFEN
     Dosage: DOSE UNKNOWN
  39. TAMOXIFEN [Concomitant]
     Active Substance: TAMOXIFEN
     Dosage: DOSE UNKNOWN
     Route: 065
  40. TAMOXIFEN [Concomitant]
     Active Substance: TAMOXIFEN
     Dosage: DOSE UNKNOWN
  41. TOREMIFENE [Concomitant]
     Active Substance: TOREMIFENE
     Indication: Breast cancer
     Dosage: DOSE UNKNOWN
  42. TOREMIFENE [Concomitant]
     Active Substance: TOREMIFENE
     Dosage: DOSE UNKNOWN
     Route: 065
  43. AFINITOR [Concomitant]
     Active Substance: EVEROLIMUS
     Indication: Breast cancer
     Dosage: DOSE UNKNOWN
  44. AFINITOR [Concomitant]
     Active Substance: EVEROLIMUS
     Dosage: DOSE UNKNOWN
     Route: 065
  45. AROMASIN [Concomitant]
     Active Substance: EXEMESTANE
     Indication: Breast cancer
     Dosage: DOSE UNKNOWN
  46. AROMASIN [Concomitant]
     Active Substance: EXEMESTANE
     Dosage: DOSE UNKNOWN
     Route: 065
  47. DENOSUMAB [Concomitant]
     Active Substance: DENOSUMAB
     Indication: Breast cancer
     Dosage: DOSE UNKNOWN
  48. DENOSUMAB [Concomitant]
     Active Substance: DENOSUMAB
     Dosage: DOSE UNKNOWN
  49. IBRANCE [Concomitant]
     Active Substance: PALBOCICLIB
     Indication: Breast cancer
     Dosage: DOSE UNKNOWN
  50. IBRANCE [Concomitant]
     Active Substance: PALBOCICLIB
     Dosage: DOSE UNKNOWN
  51. VERZENIO [Concomitant]
     Active Substance: ABEMACICLIB
     Indication: Breast cancer
     Dosage: DOSE UNKNOWN
  52. VERZENIO [Concomitant]
     Active Substance: ABEMACICLIB
     Dosage: DOSE UNKNOWN
  53. PACLITAXEL [Concomitant]
     Active Substance: PACLITAXEL
     Indication: Breast cancer
     Dosage: DOSE UNKNOWN
  54. PACLITAXEL [Concomitant]
     Active Substance: PACLITAXEL
     Dosage: DOSE UNKNOWN
     Route: 065
  55. AVASTIN [Concomitant]
     Active Substance: BEVACIZUMAB
     Indication: Breast cancer
     Dosage: DOSE UNKNOWN
  56. AVASTIN [Concomitant]
     Active Substance: BEVACIZUMAB
     Dosage: DOSE UNKNOWN
     Route: 065
  57. HALAVEN [Concomitant]
     Active Substance: ERIBULIN MESYLATE
     Indication: Breast cancer
     Dosage: DOSE UNKNOWN
     Route: 065
  58. HALAVEN [Concomitant]
     Active Substance: ERIBULIN MESYLATE
     Dosage: DOSE UNKNOWN
  59. HALAVEN [Concomitant]
     Active Substance: ERIBULIN MESYLATE
     Dosage: DOSE UNKNOWN
     Route: 065
  60. HALAVEN [Concomitant]
     Active Substance: ERIBULIN MESYLATE
     Dosage: DOSE UNKNOWN

REACTIONS (11)
  - Hyperglycaemia [Recovered/Resolved]
  - Erythema multiforme [Recovered/Resolved]
  - Acute kidney injury [Recovered/Resolved]
  - Blood pressure decreased [Recovered/Resolved]
  - Interstitial lung disease [Recovered/Resolved]
  - Vomiting [Unknown]
  - Pyrexia [Unknown]
  - Feeding disorder [Unknown]
  - Oral disorder [Unknown]
  - Malaise [Recovering/Resolving]
  - Dehydration [Unknown]
